FAERS Safety Report 6384392-2 (Version None)
Quarter: 2009Q4

REPORT INFORMATION
  Report Type: 
  Country: None (occurrence: None)
  Receive Date: 20091001
  Receipt Date: 20090923
  Transmission Date: 20100525
  Serious: Yes (Hospitalization)
  Sender: FDA-Public Use
  Company Number: CA-JNJFOC-20090907553

PATIENT
  Sex: Male
  Weight: 90 kg

DRUGS (2)
  1. REMICADE [Suspect]
     Dosage: TOTAL OF 6 DOSES
     Route: 042
     Dates: start: 20080826, end: 20090804
  2. REMICADE [Suspect]
     Indication: CROHN'S DISEASE
     Route: 042
     Dates: start: 20080826, end: 20090804

REACTIONS (5)
  - DIARRHOEA [None]
  - INFECTION [None]
  - LOSS OF CONSCIOUSNESS [None]
  - PYREXIA [None]
  - TREMOR [None]
